FAERS Safety Report 18422012 (Version 1)
Quarter: 2020Q4

REPORT INFORMATION
  Report Type: Spontaneous
  Country: IL (occurrence: IL)
  Receive Date: 20201023
  Receipt Date: 20201023
  Transmission Date: 20210114
  Serious: Yes (Hospitalization)
  Sender: FDA-Public Use
  Company Number: IL-AMGEN-ISRSP2020169251

PATIENT
  Age: 69 Year
  Sex: Female

DRUGS (8)
  1. NEUPOGEN [Suspect]
     Active Substance: FILGRASTIM
     Indication: PRODUCT USED FOR UNKNOWN INDICATION
     Dosage: 600 MICROGRAM
     Route: 065
     Dates: start: 20200908
  2. PREDNISONE. [Concomitant]
     Active Substance: PREDNISONE
     Dosage: 20 MILLIGRAM
  3. HEXAKAPRON [Concomitant]
     Active Substance: TRANEXAMIC ACID
     Dosage: UNK
  4. THALIDOMIDE CELGENE [Concomitant]
     Active Substance: THALIDOMIDE
     Dosage: 50 MILLIGRAM
  5. BACLOSAL [Concomitant]
     Active Substance: BACLOFEN
     Dosage: UNK (10)
  6. FOLIC ACID. [Concomitant]
     Active Substance: FOLIC ACID
     Dosage: 5 MILLIGRAM
  7. FUSID [FUROSEMIDE] [Concomitant]
     Active Substance: FUROSEMIDE
     Dosage: UNK
  8. OMEPRADEX [Concomitant]
     Active Substance: OMEPRAZOLE
     Dosage: 20 MILLIGRAM

REACTIONS (5)
  - Skin discharge [Unknown]
  - Pyrexia [Unknown]
  - Skin burning sensation [Unknown]
  - Rash pruritic [Unknown]
  - Pain [Unknown]

NARRATIVE: CASE EVENT DATE: 2020
